FAERS Safety Report 5468788-9 (Version None)
Quarter: 2007Q3

REPORT INFORMATION
  Report Type: 
  Country: None (occurrence: None)
  Receive Date: 20070926
  Receipt Date: 20070917
  Transmission Date: 20080115
  Serious: Yes (Life-Threatening, Hospitalization, Disabling)
  Sender: FDA-Public Use
  Company Number: GB-GENENTECH-247950

PATIENT
  Age: 68 Year
  Sex: Male
  Weight: 74.4 kg

DRUGS (1)
  1. RITUXAN [Suspect]
     Indication: IDIOPATHIC THROMBOCYTOPENIC PURPURA
     Dosage: 700 MG, 4/WEEK
     Route: 041
     Dates: start: 20070717, end: 20070807

REACTIONS (1)
  - PULMONARY FIBROSIS [None]
